FAERS Safety Report 4274893-5 (Version None)
Quarter: 2004Q1

REPORT INFORMATION
  Report Type: 
  Country: None (occurrence: None)
  Receive Date: 20040116
  Receipt Date: 20040116
  Transmission Date: 20041129
  Serious: Yes (Hospitalization)
  Sender: FDA-Public Use
  Company Number: None

PATIENT
  Age: 76 Year
  Sex: Male
  Weight: 79.3795 kg

DRUGS (1)
  1. FENTANYL [Suspect]

REACTIONS (6)
  - ASPIRATION [None]
  - CHRONIC OBSTRUCTIVE AIRWAYS DISEASE EXACERBATED [None]
  - DRUG TOXICITY [None]
  - MEDICATION ERROR [None]
  - MENTAL STATUS CHANGES [None]
  - RESPIRATORY DISTRESS [None]
